FAERS Safety Report 4451548-5 (Version None)
Quarter: 2004Q3

REPORT INFORMATION
  Report Type: 
  Country: None (occurrence: None)
  Receive Date: 20040915
  Receipt Date: 20040908
  Transmission Date: 20050211
  Serious: Yes (Death)
  Sender: FDA-Public Use
  Company Number: 2004UW19062

PATIENT
  Sex: Female

DRUGS (3)
  1. SEROQUEL [Suspect]
     Indication: MANIA
     Dosage: 300 MG PO
     Route: 048
  2. SEROQUEL [Suspect]
     Indication: MANIA
     Dosage: 8000 MG ONCE PO
     Route: 048
  3. LAMICTAL [Suspect]

REACTIONS (2)
  - COMPLETED SUICIDE [None]
  - OVERDOSE [None]
